FAERS Safety Report 20026892 (Version 3)
Quarter: 2021Q4

REPORT INFORMATION
  Report Type: Spontaneous
  Country: GB (occurrence: GB)
  Receive Date: 20211103
  Receipt Date: 20211230
  Transmission Date: 20220304
  Serious: Yes (Hospitalization)
  Sender: FDA-Public Use
  Company Number: GB-ROCHE-2144358

PATIENT
  Age: 65 Year
  Sex: Female

DRUGS (34)
  1. LETROZOLE [Suspect]
     Active Substance: LETROZOLE
     Indication: Breast cancer metastatic
     Dosage: 2.5 MILLIGRAM, QD
     Route: 048
     Dates: start: 20170718, end: 20180228
  2. CAPECITABINE [Suspect]
     Active Substance: CAPECITABINE
     Indication: Breast cancer metastatic
     Dosage: 2150 MILLIGRAM, UNK
     Route: 048
     Dates: start: 20180411, end: 20180605
  3. CAPECITABINE [Suspect]
     Active Substance: CAPECITABINE
     Dosage: 2150 MILLIGRAM, BID
     Route: 048
     Dates: start: 20180321, end: 20180403
  4. CAPECITABINE [Suspect]
     Active Substance: CAPECITABINE
     Dosage: 2300 MILLIGRAM, BID
     Route: 048
     Dates: start: 20180228, end: 20180313
  5. CAPECITABINE [Suspect]
     Active Substance: CAPECITABINE
     Dosage: UNK
     Route: 065
  6. TRASTUZUMAB [Suspect]
     Active Substance: TRASTUZUMAB
     Indication: Breast cancer metastatic
     Dosage: 600 MILLIGRAM, 1 DOSE/3 WEEKS
     Route: 058
     Dates: start: 20180228
  7. HYALURONIDASE (HUMAN RECOMBINANT) [Suspect]
     Active Substance: HYALURONIDASE (HUMAN RECOMBINANT)
     Indication: Breast cancer metastatic
     Dosage: 600 MG, EVERY 3 WEEKS (DOSAGE FORM: 231)
     Route: 058
     Dates: start: 20180228
  8. ALTEPLASE [Concomitant]
     Active Substance: ALTEPLASE
     Indication: Infectious pleural effusion
     Dosage: 10 MILLIGRAM, DAILY
     Route: 065
     Dates: start: 20181005, end: 20181007
  9. ALTEPLASE [Concomitant]
     Active Substance: ALTEPLASE
     Dosage: 40 MG, QD (DOSAGE FORM: 230)
     Route: 065
     Dates: start: 20181005, end: 20181007
  10. BENZYDAMINE [Concomitant]
     Active Substance: BENZYDAMINE
     Indication: Infectious pleural effusion
     Dosage: 10 MILLILITER
     Route: 061
     Dates: start: 20180320, end: 20180627
  11. COCODAMOL [Concomitant]
     Active Substance: ACETAMINOPHEN\CODEINE PHOSPHATE
     Indication: Product used for unknown indication
     Dosage: 530 MILLIGRAM, AS NECESSARY
     Route: 048
     Dates: start: 20180215
  12. CYCLIZINE [Concomitant]
     Active Substance: CYCLIZINE
     Indication: Product used for unknown indication
     Dosage: 50 MILLIGRAM, UNK
     Route: 048
     Dates: start: 20180216, end: 20180217
  13. DALTEPARIN [Concomitant]
     Active Substance: DALTEPARIN
     Indication: Product used for unknown indication
     Dosage: 5000 INTERNATIONAL UNIT, DAILY
     Route: 058
     Dates: start: 20180606, end: 20180607
  14. FLUCLOXACILLIN [Concomitant]
     Active Substance: FLUCLOXACILLIN
     Indication: Product used for unknown indication
     Dosage: 250 MILLIGRAM, QID
     Route: 048
     Dates: start: 20181018, end: 20181115
  15. FLUCLOXACILLIN [Concomitant]
     Active Substance: FLUCLOXACILLIN
     Dosage: 1 GRAM, DAILY
     Route: 048
     Dates: start: 201806, end: 201806
  16. FLUCLOXACILLIN [Concomitant]
     Active Substance: FLUCLOXACILLIN
     Indication: Infectious pleural effusion
     Dosage: 1 GRAM, QID
     Route: 042
     Dates: start: 20190107, end: 20190110
  17. FLUCLOXACILLIN [Concomitant]
     Active Substance: FLUCLOXACILLIN
     Dosage: 1 GRAM, QID
     Route: 042
     Dates: start: 20181005, end: 20181008
  18. FLUCLOXACILLIN [Concomitant]
     Active Substance: FLUCLOXACILLIN
     Dosage: 500 MILLIGRAM, QID
     Route: 048
     Dates: start: 20180924, end: 20181004
  19. FLUCLOXACILLIN [Concomitant]
     Active Substance: FLUCLOXACILLIN
     Dosage: 1 GRAM, QID
     Route: 048
     Dates: start: 20190110, end: 20190116
  20. FLUCLOXACILLIN [Concomitant]
     Active Substance: FLUCLOXACILLIN
     Dosage: 500 MILLIGRAM, QID
     Route: 048
     Dates: start: 20180316, end: 20180330
  21. FLUCLOXACILLIN [Concomitant]
     Active Substance: FLUCLOXACILLIN
     Dosage: 500 MILLIGRAM, QID
     Route: 048
     Dates: start: 20190117
  22. FLUCLOXACILLIN [Concomitant]
     Active Substance: FLUCLOXACILLIN
     Dosage: 500 MILLIGRAM, QID
     Route: 048
     Dates: start: 20181008, end: 20181017
  23. LOPERAMIDE [Concomitant]
     Active Substance: LOPERAMIDE
     Indication: Product used for unknown indication
     Dosage: 2 MILLIGRAM, AS NECESSARY
     Route: 048
     Dates: start: 20180320
  24. MORPHINE SULFATE [Concomitant]
     Active Substance: MORPHINE SULFATE
     Dosage: 5 MILLIGRAM, DAILY
     Route: 048
     Dates: start: 20180604, end: 20180605
  25. MORPHINE SULFATE [Concomitant]
     Active Substance: MORPHINE SULFATE
     Indication: Analgesic therapy
  26. ACETAMINOPHEN [Concomitant]
     Active Substance: ACETAMINOPHEN
     Indication: Product used for unknown indication
     Dosage: 1 GRAM, AS NECESSARY
     Route: 048
     Dates: start: 20180129
  27. PULMOZYME [Concomitant]
     Active Substance: DORNASE ALFA
     Indication: Infectious pleural effusion
     Dosage: 5 MILLIGRAM, BID
     Route: 065
     Dates: start: 20190107, end: 20190110
  28. PULMOZYME [Concomitant]
     Active Substance: DORNASE ALFA
     Dosage: 5 MILLIGRAM, QID
     Route: 065
     Dates: start: 20181005, end: 20181007
  29. HYALURONIDASE (HUMAN RECOMBINANT) [Suspect]
     Active Substance: HYALURONIDASE (HUMAN RECOMBINANT)
     Indication: Product used for unknown indication
  30. AMOXICILLIN [Concomitant]
     Active Substance: AMOXICILLIN
     Indication: Product used for unknown indication
  31. CASPOFUNGIN [Concomitant]
     Active Substance: CASPOFUNGIN
     Indication: Product used for unknown indication
  32. ENOXAPARIN [Concomitant]
     Active Substance: ENOXAPARIN
     Indication: Product used for unknown indication
  33. OMEPRAZOLE [Concomitant]
     Active Substance: OMEPRAZOLE
     Indication: Product used for unknown indication
  34. ONDANSETRON [Concomitant]
     Active Substance: ONDANSETRON
     Indication: Product used for unknown indication

REACTIONS (1)
  - Device related infection [Recovered/Resolved with Sequelae]

NARRATIVE: CASE EVENT DATE: 20180603
